FAERS Safety Report 20903138 (Version 1)
Quarter: 2022Q2

REPORT INFORMATION
  Report Type: Report from Study
  Country: US (occurrence: US)
  Receive Date: 20220601
  Receipt Date: 20220601
  Transmission Date: 20220721
  Serious: Yes (Life-Threatening, Other)
  Sender: FDA-Public Use
  Company Number: US-GILEAD-2021-0543872

PATIENT
  Sex: Male
  Weight: 99.1 kg

DRUGS (2)
  1. REMDESIVIR [Suspect]
     Active Substance: REMDESIVIR
     Indication: COVID-19
     Dosage: 100 MG, QD
     Route: 042
     Dates: start: 20210714, end: 20210717
  2. NARSOPLIMAB [Suspect]
     Active Substance: NARSOPLIMAB
     Indication: COVID-19
     Dosage: 370 MG, BIW
     Route: 042
     Dates: start: 20210710, end: 20210720

REACTIONS (1)
  - Cardiac arrest [Not Recovered/Not Resolved]
